FAERS Safety Report 15058171 (Version 1)
Quarter: 2018Q3

REPORT INFORMATION
  Report Type: Spontaneous
  Country: US (occurrence: US)
  Receive Date: 20180625
  Receipt Date: 20180625
  Transmission Date: 20181010
  Serious: Yes (Life-Threatening, Hospitalization, Other)
  Sender: FDA-Public Use
  Company Number: US-AUROBINDO-AUR-APL-2018-032466

PATIENT
  Age: 42 Year
  Sex: Male

DRUGS (12)
  1. METHYLENE BLUE. [Suspect]
     Active Substance: METHYLENE BLUE
     Indication: HYPOTENSION
     Route: 065
  2. METOPROLOL. [Concomitant]
     Active Substance: METOPROLOL
     Route: 048
  3. ENOXAPARIN [Concomitant]
     Active Substance: ENOXAPARIN
  4. PAROXETINE. [Suspect]
     Active Substance: PAROXETINE
     Indication: DEPRESSION
     Route: 048
  5. BUPROPION. [Interacting]
     Active Substance: BUPROPION
     Indication: ATTENTION DEFICIT/HYPERACTIVITY DISORDER
     Dosage: EXTENDED RELEASE (XL)
     Route: 065
  6. VASOPRESSIN. [Concomitant]
     Active Substance: VASOPRESSIN
     Indication: HYPOTENSION
     Dosage: ()
  7. NOREPINEPHRINE. [Concomitant]
     Active Substance: NOREPINEPHRINE
     Indication: HYPOTENSION
     Dosage: ()
  8. FENTANYL. [Suspect]
     Active Substance: FENTANYL
     Indication: PRODUCT USED FOR UNKNOWN INDICATION
     Route: 065
  9. PANAX GINSENG ROOT [Interacting]
     Active Substance: ASIAN GINSENG
     Indication: PHYTOTHERAPY
     Dosage: ()
     Route: 065
  10. METOPROLOL. [Concomitant]
     Active Substance: METOPROLOL
     Indication: ATRIAL FIBRILLATION
     Dosage: ()
  11. BASIL FES [Suspect]
     Active Substance: BASIL\HERBALS
     Indication: PHYTOTHERAPY
     Dosage: ()
     Route: 065
  12. FENUGREEK                          /01475701/ [Suspect]
     Active Substance: HERBALS
     Indication: PHYTOTHERAPY
     Dosage: ()
     Route: 065

REACTIONS (3)
  - Serotonin syndrome [Recovering/Resolving]
  - Drug interaction [Recovering/Resolving]
  - Herbal interaction [Recovering/Resolving]
